FAERS Safety Report 10438829 (Version 1)
Quarter: 2014Q3

REPORT INFORMATION
  Report Type: Spontaneous
  Country: US (occurrence: US)
  Receive Date: 20140908
  Receipt Date: 20140908
  Transmission Date: 20150326
  Serious: No
  Sender: FDA-Public Use
  Company Number: US-BRISTOL-MYERS SQUIBB COMPANY-21172721

PATIENT
  Sex: Male

DRUGS (1)
  1. ABILIFY [Suspect]
     Active Substance: ARIPIPRAZOLE
     Dosage: STARTED WITH 2MG, INCREASED T0 5 MG AND THEN REDUCED TO 3MG

REACTIONS (1)
  - Adverse event [Unknown]
